FAERS Safety Report 4423660-8 (Version None)
Quarter: 2004Q3

REPORT INFORMATION
  Report Type: 
  Country: None (occurrence: None)
  Receive Date: 20040805
  Receipt Date: 20040721
  Transmission Date: 20050211
  Serious: Yes (Hospitalization)
  Sender: FDA-Public Use
  Company Number: DSA_24171_2004

PATIENT
  Age: 13 Year
  Sex: Male

DRUGS (9)
  1. DILTIAZEM HYDROCHLORIDE [Suspect]
     Indication: HYPERTENSION
     Dosage: 1.1 MCG/KG/MIN CON IV
     Route: 042
     Dates: start: 20040214, end: 20040215
  2. DILTIAZEM HYDROCHLORIDE [Suspect]
     Indication: HYPERTENSION
     Dosage: 1.56 MCG/KG/MIN CON IV
     Route: 042
     Dates: start: 20040216, end: 20040226
  3. DILTIAZEM HYDROCHLORIDE [Suspect]
     Indication: HYPERTENSION
     Dosage: 1.3 MCG/KG/MIN CON IV
     Route: 042
     Dates: start: 20040227, end: 20040227
  4. DILTIAZEM HYDROCHLORIDE [Suspect]
     Indication: HYPERTENSION
     Dosage: 1.1 MCG/KG/MIN CON IV
     Route: 042
     Dates: start: 20040228, end: 20040228
  5. DILTIAZEM HYDROCHLORIDE [Suspect]
     Indication: HYPERTENSION
     Dosage: 0.78MCG/KG/MIN CON IV
     Route: 042
     Dates: start: 20040229, end: 20040229
  6. DILTIAZEM HYDROCHLORIDE [Suspect]
     Indication: HYPERTENSION
     Dosage: 0.52 MCG/KG/MIN CONT IV
     Route: 042
     Dates: start: 20040301, end: 20040301
  7. ENTOMIN [Concomitant]
  8. TIOCTAN [Concomitant]
  9. BIOTIN [Concomitant]

REACTIONS (15)
  - ALANINE AMINOTRANSFERASE INCREASED [None]
  - ASPARTATE AMINOTRANSFERASE INCREASED [None]
  - BASE EXCESS NEGATIVE [None]
  - BLOOD CHLORIDE INCREASED [None]
  - BLOOD LACTIC ACID INCREASED [None]
  - BLOOD PH DECREASED [None]
  - BLOOD SODIUM DECREASED [None]
  - BLOOD UREA INCREASED [None]
  - CONDITION AGGRAVATED [None]
  - DISEASE RECURRENCE [None]
  - EOSINOPHIL COUNT DECREASED [None]
  - HAEMATOCRIT DECREASED [None]
  - MONOCYTE COUNT INCREASED [None]
  - RED BLOOD CELL COUNT DECREASED [None]
  - WHITE BLOOD CELL COUNT DECREASED [None]
